FAERS Safety Report 8339645-5 (Version None)
Quarter: 2012Q2

REPORT INFORMATION
  Report Type: 
  Country: None (occurrence: None)
  Receive Date: 20120507
  Receipt Date: 20120504
  Transmission Date: 20120825
  Serious: Yes (Other)
  Sender: FDA-Public Use
  Company Number: PHHY2012NL038038

PATIENT
  Sex: Female

DRUGS (2)
  1. ZOMETA [Suspect]
     Indication: METASTASES TO BONE
     Dosage: 4MG/100ML, ONCE PER 21 DAYS
     Dates: start: 20120328
  2. ZOMETA [Suspect]
     Dosage: 4MG/100ML, ONCE PER 21 DAYS
     Dates: start: 20120416

REACTIONS (1)
  - TERMINAL STATE [None]
